FAERS Safety Report 15982122 (Version 3)
Quarter: 2019Q1

REPORT INFORMATION
  Report Type: Spontaneous
  Country: US (occurrence: US)
  Receive Date: 20190219
  Receipt Date: 20190326
  Transmission Date: 20190418
  Serious: Yes (Hospitalization, Other)
  Sender: FDA-Public Use
  Company Number: US-PFIZER INC-2019016084

PATIENT
  Age: 80 Year
  Sex: Female
  Weight: 72.56 kg

DRUGS (9)
  1. PRAVASTATIN SODIUM. [Concomitant]
     Active Substance: PRAVASTATIN SODIUM
     Indication: BLOOD CHOLESTEROL ABNORMAL
     Dosage: 80 MG, 2X/DAY, [ONE IN THE MORNING AND ONE AT NIGHT, BY MOUTH]
     Route: 048
  2. AMLODIPINE BESILATE [Concomitant]
     Active Substance: AMLODIPINE BESYLATE
     Dosage: 10 MG, 1X/DAY
     Route: 048
  3. DILANTIN [Suspect]
     Active Substance: PHENYTOIN
     Indication: SEIZURE
     Dosage: UNK, 1X/DAY EVERY BEDTIME
  4. DILANTIN [Interacting]
     Active Substance: PHENYTOIN
     Dosage: 400 MG, 1X/DAY (AT NIGHT)
  5. EXEMESTANE. [Interacting]
     Active Substance: EXEMESTANE
     Indication: HORMONE SUPPRESSION THERAPY
     Dosage: UNK
     Dates: start: 201807
  6. AMLODIPINE [Concomitant]
     Active Substance: AMLODIPINE BESYLATE
     Indication: BLOOD PRESSURE ABNORMAL
     Dosage: 10 MG, 1X/DAY
     Route: 048
  7. LOSARTAN AND HYDROCHLOROTHIAZIDE [Concomitant]
     Active Substance: HYDROCHLOROTHIAZIDE\LOSARTAN POTASSIUM
     Dosage: UNK, 1X/DAY [LOSARTAN POTASSIUM: 100 MG; HYDROCHLOROTHIAZIDE: 25]
     Route: 048
     Dates: start: 201804
  8. DILANTIN [Interacting]
     Active Substance: PHENYTOIN
     Dosage: 300 MG, 1X/DAY [NIGHTLY]
     Route: 048
     Dates: start: 1963
  9. SERTRALINE HCL [Concomitant]
     Active Substance: SERTRALINE HYDROCHLORIDE
     Indication: HORMONE REPLACEMENT THERAPY
     Dosage: 100 MG, 1X/DAY
     Route: 048
     Dates: start: 2017

REACTIONS (12)
  - Fall [Unknown]
  - Inhibitory drug interaction [Unknown]
  - Ankle fracture [Recovered/Resolved]
  - Feeling drunk [Recovered/Resolved]
  - Product prescribing error [Unknown]
  - Blood glucose decreased [Recovering/Resolving]
  - Anticonvulsant drug level below therapeutic [Recovering/Resolving]
  - Amnesia [Not Recovered/Not Resolved]
  - Balance disorder [Recovered/Resolved]
  - Neoplasm malignant [Recovered/Resolved]
  - Seizure [Recovering/Resolving]
  - Liver disorder [Unknown]

NARRATIVE: CASE EVENT DATE: 1962
